FAERS Safety Report 6875576-5 (Version None)
Quarter: 2010Q3

REPORT INFORMATION
  Report Type: 
  Country: None (occurrence: None)
  Receive Date: 20100727
  Receipt Date: 20100713
  Transmission Date: 20110219
  Serious: Yes (Other)
  Sender: FDA-Public Use
  Company Number: US-JNJFOC-20100707307

PATIENT
  Age: 47 Year
  Sex: Male
  Weight: 204.12 kg

DRUGS (3)
  1. TYLENOL EXTRA STRENGTH EZ TAB [Suspect]
     Route: 048
  2. TYLENOL EXTRA STRENGTH EZ TAB [Suspect]
     Indication: PAIN
     Dosage: TAKES TWO  IN THE MORNING AND TWO AT NIGHT.
     Route: 048
  3. LISINOPRIL [Concomitant]
     Indication: HEART RATE DECREASED

REACTIONS (2)
  - ABDOMINAL PAIN LOWER [None]
  - BLOOD URINE PRESENT [None]
